FAERS Safety Report 20796508 (Version 3)
Quarter: 2022Q2

REPORT INFORMATION
  Report Type: Report from Study
  Country: US (occurrence: US)
  Receive Date: 20220506
  Receipt Date: 20220516
  Transmission Date: 20220721
  Serious: Yes (Hospitalization, Other)
  Sender: FDA-Public Use
  Company Number: US-BIOVITRUM-2022US05464

PATIENT
  Age: 63 Year
  Sex: Male

DRUGS (12)
  1. KINERET [Suspect]
     Active Substance: ANAKINRA
     Indication: Arthritis
     Route: 058
     Dates: start: 20220420
  2. WARFARIN [Concomitant]
     Active Substance: WARFARIN
  3. PANTOPRAZOLE [Concomitant]
     Active Substance: PANTOPRAZOLE
  4. METHOTREXATE [Concomitant]
     Active Substance: METHOTREXATE
  5. FOLIC ACID [Concomitant]
     Active Substance: FOLIC ACID
  6. FUROSEMIDE [Concomitant]
     Active Substance: FUROSEMIDE
  7. ROBAXIN [Concomitant]
     Active Substance: METHOCARBAMOL
  8. COLCHICINE [Concomitant]
     Active Substance: COLCHICINE
  9. PREDNISONE [Concomitant]
     Active Substance: PREDNISONE
  10. PERCOCET [Concomitant]
     Active Substance: ACETAMINOPHEN\OXYCODONE HYDROCHLORIDE
  11. METFORMIN [Concomitant]
     Active Substance: METFORMIN HYDROCHLORIDE
  12. KRYSTEXXA [Concomitant]
     Active Substance: PEGLOTICASE

REACTIONS (8)
  - Thrombosis [Unknown]
  - Fluid retention [Unknown]
  - Rash macular [Unknown]
  - Fatigue [Unknown]
  - Musculoskeletal stiffness [Unknown]
  - Tenderness [Unknown]
  - General physical health deterioration [Unknown]
  - Off label use [Unknown]

NARRATIVE: CASE EVENT DATE: 20220420
